FAERS Safety Report 15566555 (Version 1)
Quarter: 2018Q4

REPORT INFORMATION
  Report Type: Spontaneous
  Country: FR (occurrence: FR)
  Receive Date: 20181030
  Receipt Date: 20181030
  Transmission Date: 20190205
  Serious: Yes (Other)
  Sender: FDA-Public Use
  Company Number: FR-TEVA-2018-FR-968812

PATIENT
  Age: 63 Year
  Sex: Female

DRUGS (2)
  1. LETROZOLE. [Suspect]
     Active Substance: LETROZOLE
     Indication: BREAST CANCER
     Route: 065
  2. DOCETAXEL. [Suspect]
     Active Substance: DOCETAXEL
     Indication: BREAST CANCER
     Dosage: FOUR CYCLES, EVERY 21 DAYS
     Route: 065

REACTIONS (4)
  - Disease recurrence [Recovered/Resolved]
  - Photosensitivity reaction [Unknown]
  - Staphylococcal impetigo [Recovered/Resolved]
  - Acute generalised exanthematous pustulosis [Recovered/Resolved]
